FAERS Safety Report 6608861-2 (Version None)
Quarter: 2010Q1

REPORT INFORMATION
  Report Type: 
  Country: None (occurrence: None)
  Receive Date: 20100301
  Receipt Date: 20100215
  Transmission Date: 20100710
  Serious: Yes (Other)
  Sender: FDA-Public Use
  Company Number: FR-MYLANLABS-2010S1002348

PATIENT
  Age: 36 Year
  Sex: Male

DRUGS (3)
  1. ETOPOSIDE [Suspect]
     Indication: TESTICULAR SEMINOMA (PURE)
     Dosage: 100 MG/M2/DAY FOR 5 DAYS; 4 CYCLES
  2. CISPLATIN [Suspect]
     Indication: TESTICULAR SEMINOMA (PURE)
     Dosage: 20 MG/M2/DAY FOR 5 DAYS; 4 CYCLES
  3. PREDNISOLONE [Suspect]

REACTIONS (1)
  - ARTERIAL THROMBOSIS LIMB [None]
